FAERS Safety Report 10334986 (Version 1)
Quarter: 2014Q3

REPORT INFORMATION
  Report Type: Spontaneous
  Country: BR (occurrence: BR)
  Receive Date: 20140723
  Receipt Date: 20140723
  Transmission Date: 20150326
  Serious: Yes (Other)
  Sender: FDA-Public Use
  Company Number: PHHY2014BR088511

PATIENT
  Age: 9 Year
  Sex: Female
  Weight: 32 kg

DRUGS (1)
  1. DIASEC [Suspect]
     Active Substance: LOPERAMIDE HYDROCHLORIDE
     Indication: DIARRHOEA
     Dosage: 2 MG, BID
     Route: 048
     Dates: start: 201406

REACTIONS (4)
  - Hypersensitivity [Unknown]
  - Dyspnoea [Recovered/Resolved]
  - Rash [Recovered/Resolved]
  - Vision blurred [Not Recovered/Not Resolved]
